FAERS Safety Report 17019045 (Version 1)
Quarter: 2019Q4

REPORT INFORMATION
  Report Type: Spontaneous
  Country: BD (occurrence: BD)
  Receive Date: 20191112
  Receipt Date: 20191112
  Transmission Date: 20200122
  Serious: Yes (Death, Other)
  Sender: FDA-Public Use
  Company Number: BD-ROCHE-2459627

PATIENT

DRUGS (1)
  1. XELODA [Suspect]
     Active Substance: CAPECITABINE
     Indication: NEOPLASM MALIGNANT
     Dosage: 3 CYCLES (14 DAYS CYCLE)
     Route: 048

REACTIONS (2)
  - Metastatic neoplasm [Unknown]
  - Death [Fatal]
